FAERS Safety Report 6315194-0 (Version None)
Quarter: 2009Q3

REPORT INFORMATION
  Report Type: 
  Country: None (occurrence: None)
  Receive Date: 20090819
  Receipt Date: 20090807
  Transmission Date: 20100115
  Serious: Yes (Death, Hospitalization)
  Sender: FDA-Public Use
  Company Number: GB-MERCK-0906GBR00094

PATIENT
  Age: 49 Year
  Sex: Female
  Weight: 112 kg

DRUGS (5)
  1. ISENTRESS [Suspect]
     Indication: HIV INFECTION
     Route: 048
     Dates: start: 20090129, end: 20090301
  2. DARUNAVIR [Concomitant]
     Indication: HIV INFECTION
     Route: 065
     Dates: start: 20090129, end: 20090216
  3. ETRAVIRINE [Concomitant]
     Indication: HIV INFECTION
     Route: 065
     Dates: start: 20090129, end: 20090301
  4. KALETRA [Concomitant]
     Route: 065
     Dates: start: 20090216
  5. RITONAVIR [Concomitant]
     Route: 065

REACTIONS (1)
  - TOXIC EPIDERMAL NECROLYSIS [None]
